FAERS Safety Report 16656021 (Version 2)
Quarter: 2019Q3

REPORT INFORMATION
  Report Type: Report from Study
  Country: US (occurrence: US)
  Receive Date: 20190801
  Receipt Date: 20190830
  Transmission Date: 20191004
  Serious: Yes (Hospitalization)
  Sender: FDA-Public Use
  Company Number: US-JNJFOC-20190318473

PATIENT
  Age: 61 Year
  Sex: Male

DRUGS (3)
  1. IMBRUVICA [Suspect]
     Active Substance: IBRUTINIB
     Indication: CHRONIC LYMPHOCYTIC LEUKAEMIA
     Route: 048
     Dates: start: 20190119
  2. IMBRUVICA [Suspect]
     Active Substance: IBRUTINIB
     Indication: B-CELL SMALL LYMPHOCYTIC LYMPHOMA
     Route: 048
     Dates: start: 20190216
  3. IMBRUVICA [Suspect]
     Active Substance: IBRUTINIB
     Route: 048
     Dates: start: 20190316, end: 2019

REACTIONS (12)
  - Infected skin ulcer [Unknown]
  - Pain of skin [Unknown]
  - Skin discolouration [Unknown]
  - Pruritus generalised [Unknown]
  - Impaired healing [Unknown]
  - Nasopharyngitis [Unknown]
  - Nausea [Unknown]
  - Therapeutic response unexpected [Recovered/Resolved]
  - Sensitive skin [Unknown]
  - Contusion [Unknown]
  - Pneumonia [Unknown]
  - Rash [Unknown]

NARRATIVE: CASE EVENT DATE: 201902
